FAERS Safety Report 9906355 (Version 4)
Quarter: 2014Q1

REPORT INFORMATION
  Report Type: Spontaneous
  Country: US (occurrence: US)
  Receive Date: 20140218
  Receipt Date: 20140317
  Transmission Date: 20141002
  Serious: Yes (Hospitalization, Other)
  Sender: FDA-Public Use
  Company Number: US-009507513-1008USA02796

PATIENT
  Sex: Female
  Weight: 77.98 kg

DRUGS (2)
  1. FOSAMAX [Suspect]
     Dosage: 70 MG, QW
     Route: 048
     Dates: start: 1996, end: 2010
  2. ALENDRONATE SODIUM [Suspect]
     Route: 048

REACTIONS (19)
  - Femur fracture [Unknown]
  - Intramedullary rod insertion [Unknown]
  - Femur fracture [Unknown]
  - Intramedullary rod insertion [Unknown]
  - Fall [Unknown]
  - Fracture delayed union [Unknown]
  - Impaired healing [Unknown]
  - Hypercholesterolaemia [Unknown]
  - Hypothyroidism [Unknown]
  - Osteoporosis [Unknown]
  - Bunion operation [Unknown]
  - Hypokalaemia [Unknown]
  - Fall [Unknown]
  - Osteopenia [Unknown]
  - Hormone level abnormal [Unknown]
  - Anaemia [Unknown]
  - Ligament injury [Unknown]
  - Fatigue [Unknown]
  - Malaise [Unknown]
